FAERS Safety Report 9650738 (Version 2)
Quarter: 2013Q4

REPORT INFORMATION
  Report Type: Report from Study
  Country: JP (occurrence: JP)
  Receive Date: 20131029
  Receipt Date: 20131205
  Transmission Date: 20140711
  Serious: Yes (Death)
  Sender: FDA-Public Use
  Company Number: JP-ROCHE-1292484

PATIENT
  Sex: Female

DRUGS (2)
  1. METHOXY POLYETHYLENE GLYCOL-EPOETIN BETA [Suspect]
     Indication: NEPHROGENIC ANAEMIA
     Route: 058
     Dates: start: 20121202, end: 20130611
  2. DARBEPOETIN ALFA [Concomitant]
     Indication: NEPHROGENIC ANAEMIA
     Route: 058
     Dates: start: 20121202, end: 20130601

REACTIONS (5)
  - Pleural effusion [Fatal]
  - Hepatic cirrhosis [Fatal]
  - Pleuroperitoneal communication [Fatal]
  - Condition aggravated [Fatal]
  - Hypertension [Unknown]
